FAERS Safety Report 9490443 (Version 2)
Quarter: 2013Q3

REPORT INFORMATION
  Report Type: Spontaneous
  Country: US (occurrence: None)
  Receive Date: 20130826
  Receipt Date: 20130904
  Transmission Date: 20140515
  Serious: Yes (Hospitalization, Other)
  Sender: FDA-Public Use
  Company Number: AUR-APL-2013-07063

PATIENT
  Age: 12 Year
  Sex: Female

DRUGS (1)
  1. LEVETIRACETAM [Suspect]
     Indication: PRODUCT USED FOR UNKNOWN INDICATION

REACTIONS (12)
  - Renal failure acute [None]
  - Metabolic acidosis [None]
  - Respiratory distress [None]
  - Metabolic encephalopathy [None]
  - Respiratory failure [None]
  - Anticonvulsant drug level above therapeutic [None]
  - Tremor [None]
  - Somnolence [None]
  - Opsoclonus myoclonus [None]
  - Muscle twitching [None]
  - No therapeutic response [None]
  - Toxic encephalopathy [None]
